FAERS Safety Report 5146471-7 (Version None)
Quarter: 2006Q4

REPORT INFORMATION
  Report Type: 
  Country: None (occurrence: None)
  Receive Date: 20061108
  Receipt Date: 20061027
  Transmission Date: 20070319
  Serious: Yes (Hospitalization)
  Sender: FDA-Public Use
  Company Number: FR-GILEAD-2006-0010563

PATIENT
  Age: 32 Year
  Sex: Female

DRUGS (7)
  1. EMTRIVA [Suspect]
     Indication: HIV INFECTION
     Dates: start: 20051124, end: 20051216
  2. VIREAD [Suspect]
     Indication: HIV INFECTION
     Route: 048
     Dates: start: 20051124, end: 20051216
  3. SUSTIVA [Suspect]
     Indication: HIV INFECTION
     Route: 048
     Dates: start: 20051124, end: 20051216
  4. BACTRIM [Suspect]
     Route: 048
     Dates: start: 20051115
  5. ZECLAR [Suspect]
     Route: 048
     Dates: start: 20051115
  6. RIFAMPICIN [Suspect]
     Dates: start: 20051109, end: 20051216
  7. ETHAMBUTOL HYDROCHLORIDE [Concomitant]
     Dates: start: 20051109, end: 20051203

REACTIONS (9)
  - BLOOD BILIRUBIN INCREASED [None]
  - DRUG TOXICITY [None]
  - GRANULOMATOUS LIVER DISEASE [None]
  - HEPATIC ENZYME INCREASED [None]
  - IMMUNE RECONSTITUTION SYNDROME [None]
  - MACROPHAGE ACTIVATION [None]
  - OCULAR ICTERUS [None]
  - OESOPHAGEAL CANDIDIASIS [None]
  - PYREXIA [None]
